FAERS Safety Report 8424421-5 (Version None)
Quarter: 2012Q2

REPORT INFORMATION
  Report Type: 
  Country: None (occurrence: None)
  Receive Date: 20120608
  Receipt Date: 20111010
  Transmission Date: 20120825
  Serious: No
  Sender: FDA-Public Use
  Company Number: US-ASTRAZENECA-2011SE38987

PATIENT
  Age: 9 Year
  Sex: Male

DRUGS (3)
  1. ALBUTEROL [Concomitant]
  2. PULMICORT FLEXHALER [Suspect]
     Indication: ASTHMA
     Dosage: 180 MCG 1 PUFF TWO TIMES A DAY
     Route: 055
     Dates: start: 20080101
  3. SINGULAIR [Concomitant]

REACTIONS (3)
  - ASTHMA [None]
  - CROUP INFECTIOUS [None]
  - DRUG INEFFECTIVE [None]
